FAERS Safety Report 6968157-6 (Version None)
Quarter: 2010Q3

REPORT INFORMATION
  Report Type: 
  Country: None (occurrence: None)
  Receive Date: 20100907
  Receipt Date: 20100827
  Transmission Date: 20110219
  Serious: Yes (Hospitalization)
  Sender: FDA-Public Use
  Company Number: CA-JNJFOC-20100900359

PATIENT
  Sex: Female
  Weight: 95 kg

DRUGS (10)
  1. REMICADE [Suspect]
     Indication: RHEUMATOID ARTHRITIS
     Route: 042
  2. REMICADE [Suspect]
     Route: 042
  3. LEFLUNOMIDE [Concomitant]
  4. FUROSEMIDE [Concomitant]
  5. METOPROLOL TARTRATE [Concomitant]
  6. ACETYLSALICYLIC ACID [Concomitant]
  7. ACETAMINOPHEN [Concomitant]
  8. MISOPROSTOL [Concomitant]
  9. CRESTOR [Concomitant]
  10. AERIUS [Concomitant]
     Indication: PREMEDICATION

REACTIONS (1)
  - KNEE ARTHROPLASTY [None]
